FAERS Safety Report 8354360-X (Version None)
Quarter: 2012Q2

REPORT INFORMATION
  Report Type: 
  Country: None (occurrence: None)
  Receive Date: 20120511
  Receipt Date: 20120504
  Transmission Date: 20120825
  Serious: Yes (Hospitalization, Other)
  Sender: FDA-Public Use
  Company Number: US-ASTRAZENECA-2010SE35924

PATIENT
  Age: 63 Year
  Sex: Female
  Weight: 68.9 kg

DRUGS (28)
  1. SEROQUEL [Suspect]
     Route: 048
  2. SEROQUEL [Suspect]
     Route: 048
  3. SEROQUEL [Suspect]
     Route: 048
  4. TOPAMAX [Concomitant]
     Indication: CONVULSION
     Route: 048
  5. CELEXA [Concomitant]
     Indication: DEPRESSION
  6. SEROQUEL [Suspect]
     Indication: DEPRESSION
     Route: 048
     Dates: start: 20030101
  7. SEROQUEL [Suspect]
     Indication: BIPOLAR DISORDER
     Route: 048
     Dates: start: 20030101
  8. SEROQUEL [Suspect]
     Route: 048
  9. SEROQUEL [Suspect]
     Route: 048
  10. LEVOXTHYROXIL [Concomitant]
     Indication: HYPOTHYROIDISM
     Dosage: DAILY
     Route: 048
     Dates: start: 20080101
  11. LISINOPRIL [Concomitant]
     Indication: BLOOD PRESSURE ABNORMAL
     Route: 048
  12. FOLIC ACID [Concomitant]
  13. SEROQUEL [Suspect]
     Route: 048
  14. SEROQUEL [Suspect]
     Route: 048
  15. SEROQUEL [Suspect]
     Route: 048
  16. SEROQUEL [Suspect]
     Route: 048
  17. CLONAZEPAM [Concomitant]
  18. SEROQUEL [Suspect]
     Route: 048
  19. SEROQUEL [Suspect]
     Route: 048
  20. ASPIRIN [Concomitant]
  21. OMEPRAZOLE [Concomitant]
  22. RESTERIL [Concomitant]
     Indication: SLEEP DISORDER
  23. SEROQUEL [Suspect]
     Route: 048
  24. SEROQUEL [Suspect]
     Route: 048
  25. PROTONIX [Concomitant]
     Indication: ABDOMINAL DISCOMFORT
     Dosage: DAILY
     Route: 048
  26. SEROQUEL [Suspect]
     Route: 048
  27. SEROQUEL [Suspect]
     Route: 048
  28. SEROQUEL [Suspect]
     Indication: ANXIETY
     Route: 048
     Dates: start: 20030101

REACTIONS (21)
  - DRUG WITHDRAWAL SYNDROME [None]
  - ANKLE FRACTURE [None]
  - PNEUMONIA [None]
  - CONVULSION [None]
  - VIRAL INFECTION [None]
  - INTENTIONAL DRUG MISUSE [None]
  - MALAISE [None]
  - NAUSEA [None]
  - APPARENT DEATH [None]
  - RENAL FAILURE [None]
  - MUSCLE TWITCHING [None]
  - INSOMNIA [None]
  - BRAIN NEOPLASM [None]
  - ANXIETY [None]
  - TONGUE BITING [None]
  - ORAL PAIN [None]
  - LOWER LIMB FRACTURE [None]
  - FALL [None]
  - CONTUSION [None]
  - PANIC ATTACK [None]
  - CARDIAC DISORDER [None]
